FAERS Safety Report 9314205 (Version 1)
Quarter: 2013Q2

REPORT INFORMATION
  Report Type: Spontaneous
  Country: US (occurrence: None)
  Receive Date: 20130524
  Receipt Date: 20130524
  Transmission Date: 20140414
  Serious: Yes (Disabling)
  Sender: FDA-Public Use
  Company Number: None

PATIENT
  Age: 68 Year
  Sex: Female
  Weight: 86.18 kg

DRUGS (5)
  1. LIVALO [Suspect]
     Indication: HYPERLIPIDAEMIA
     Dosage: 4 MG DAILY PO
     Route: 048
     Dates: start: 201112, end: 201210
  2. PRILOSEC [Concomitant]
  3. ATENOLOL [Concomitant]
  4. HYZAAR [Concomitant]
  5. CELEBREX [Concomitant]

REACTIONS (4)
  - Arthralgia [None]
  - Myalgia [None]
  - Muscular weakness [None]
  - Chromaturia [None]
